FAERS Safety Report 4747909-7 (Version None)
Quarter: 2005Q3

REPORT INFORMATION
  Report Type: 
  Country: None (occurrence: None)
  Receive Date: 20050817
  Receipt Date: 20050817
  Transmission Date: 20060218
  Serious: Yes (Life-Threatening)
  Sender: FDA-Public Use
  Company Number: None

PATIENT
  Sex: Female

DRUGS (3)
  1. MEPERIDINE 175 MG [Suspect]
     Dosage: INTRAVENOUS
     Route: 042
  2. MIDAZOLAM 7 MG [Suspect]
     Dosage: INTRAVENOUS
     Route: 042
  3. PROMETHAZIINE [Concomitant]

REACTIONS (2)
  - BLOOD PRESSURE DECREASED [None]
  - DEPRESSED LEVEL OF CONSCIOUSNESS [None]
